FAERS Safety Report 25985728 (Version 1)
Quarter: 2025Q4

REPORT INFORMATION
  Report Type: Spontaneous
  Country: MX (occurrence: MX)
  Receive Date: 20251102
  Receipt Date: 20251102
  Transmission Date: 20260117
  Serious: Yes (Other)
  Sender: DIFGEN PHARMACEUTICALS LLC
  Company Number: MX-Difgen-012243

PATIENT
  Age: 28 Year
  Sex: Male

DRUGS (2)
  1. XYLAZINE [Suspect]
     Active Substance: XYLAZINE
     Indication: Product used for unknown indication
     Dosage: PATIENT SMOKED CHINA WHITE WHICH CONTAINS A FENTANYL POWDER FORMULATION WITH XYLAZINE
     Route: 055
  2. FENTANYL [Suspect]
     Active Substance: FENTANYL
     Indication: Product used for unknown indication
     Dosage: PATIENT SMOKED CHINA WHITE WHICH CONTAINS A FENTANYL POWDER FORMULATION WITH XYLAZINE
     Route: 055

REACTIONS (3)
  - Overdose [Recovered/Resolved]
  - Hypoxia [Recovered/Resolved]
  - Loss of consciousness [Recovered/Resolved]
